FAERS Safety Report 4975323-8 (Version None)
Quarter: 2006Q2

REPORT INFORMATION
  Report Type: 
  Country: None (occurrence: None)
  Receive Date: 20060418
  Receipt Date: 20050923
  Transmission Date: 20061013
  Serious: Yes (Hospitalization)
  Sender: FDA-Public Use
  Company Number: US-MERCK-0509USA03971

PATIENT
  Age: 47 Year
  Sex: Female
  Weight: 77 kg

DRUGS (1)
  1. VIOXX [Suspect]
     Indication: OSTEOARTHRITIS
     Route: 048
     Dates: start: 20010412, end: 20040930

REACTIONS (22)
  - ANGINA PECTORIS [None]
  - ANGINA UNSTABLE [None]
  - ANKLE FRACTURE [None]
  - ANTERIOR CHAMBER DISORDER [None]
  - ARTERIOSCLEROSIS CORONARY ARTERY [None]
  - BACK PAIN [None]
  - BRAIN NEOPLASM [None]
  - BRONCHITIS [None]
  - CARDIOMEGALY [None]
  - CHEST PAIN [None]
  - CHOLELITHIASIS [None]
  - CHRONIC OBSTRUCTIVE PULMONARY DISEASE [None]
  - CORONARY ARTERY DISEASE [None]
  - CORONARY ARTERY STENOSIS [None]
  - HIATUS HERNIA [None]
  - INCISION SITE COMPLICATION [None]
  - MITRAL VALVE PROLAPSE [None]
  - MUSCULOSKELETAL CHEST PAIN [None]
  - MYOCARDIAL INFARCTION [None]
  - SINUS BRADYCARDIA [None]
  - STAPHYLOCOCCAL INFECTION [None]
  - THROMBOSIS [None]
